FAERS Safety Report 13152148 (Version 3)
Quarter: 2019Q3

REPORT INFORMATION
  Report Type: Report from Study
  Country: NL (occurrence: NL)
  Receive Date: 20170125
  Receipt Date: 20190720
  Transmission Date: 20191004
  Serious: Yes (Death)
  Sender: FDA-Public Use
  Company Number: NL-CELLTRION INC.-2017NL000547

PATIENT

DRUGS (3)
  1. REMSIMA [Suspect]
     Active Substance: INFLIXIMAB
     Dosage: 3.2 MG/KG,(3 INFUSIONS ON A 6 WEEK INTERVAL)
     Route: 042
     Dates: start: 20161104, end: 20161104
  2. REMSIMA [Suspect]
     Active Substance: INFLIXIMAB
     Dosage: 3.2 MG/KG, (3 INFUSIONS ON A 6 WEEK INTERVAL)
     Route: 042
     Dates: start: 20161216, end: 20161216
  3. REMSIMA [Suspect]
     Active Substance: INFLIXIMAB
     Indication: CROHN^S DISEASE
     Dosage: 3.2 MG/KG, (3 INFUSIONS ON A 6 WEEK INTERVAL)
     Route: 042
     Dates: start: 20160923, end: 20160923

REACTIONS (3)
  - Incorrect dose administered [Fatal]
  - Inappropriate schedule of product administration [Unknown]
  - Subarachnoid haemorrhage [Fatal]

NARRATIVE: CASE EVENT DATE: 20170103
